FAERS Safety Report 6039241-9 (Version None)
Quarter: 2009Q1

REPORT INFORMATION
  Report Type: 
  Country: None (occurrence: None)
  Receive Date: 20090115
  Receipt Date: 20090107
  Transmission Date: 20090719
  Serious: Yes (Hospitalization, Disabling, Other)
  Sender: FDA-Public Use
  Company Number: PHEH2009US00539

PATIENT
  Sex: Female

DRUGS (7)
  1. ZOMETA [Suspect]
     Indication: METASTASES TO BONE
     Dosage: 4 MG, QMO
     Route: 042
     Dates: start: 19980101, end: 20020101
  2. HERCEPTIN [Concomitant]
  3. TAXOTERE [Concomitant]
  4. DECADRON [Concomitant]
  5. AROMASIN [Concomitant]
  6. FAMOTIDINE [Concomitant]
  7. NEXIUM [Concomitant]

REACTIONS (4)
  - FISTULA DISCHARGE [None]
  - INTERNAL FIXATION OF FRACTURE [None]
  - OSTEONECROSIS [None]
  - PATHOLOGICAL FRACTURE [None]
